FAERS Safety Report 7720310-X (Version None)
Quarter: 2011Q3

REPORT INFORMATION
  Report Type: 
  Country: None (occurrence: None)
  Receive Date: 20110831
  Receipt Date: 20110826
  Transmission Date: 20111222
  Serious: No
  Sender: FDA-Public Use
  Company Number: US-PFIZER INC-2011199215

PATIENT
  Sex: Female

DRUGS (1)
  1. CHANTIX [Suspect]
     Dosage: UNK
     Dates: start: 20090728

REACTIONS (7)
  - IMPAIRED DRIVING ABILITY [None]
  - ANXIETY [None]
  - EMOTIONAL DISTRESS [None]
  - AGGRESSION [None]
  - NIGHTMARE [None]
  - MENTAL DISORDER [None]
  - ABNORMAL BEHAVIOUR [None]
